FAERS Safety Report 4798320-4 (Version None)
Quarter: 2005Q4

REPORT INFORMATION
  Report Type: 
  Country: None (occurrence: None)
  Receive Date: 20051014
  Receipt Date: 20051005
  Transmission Date: 20060501
  Serious: Yes (Hospitalization)
  Sender: FDA-Public Use
  Company Number: PHNU2005DE03358

PATIENT
  Sex: Female

DRUGS (2)
  1. ELIDEL [Suspect]
     Indication: NEURODERMATITIS
     Dates: start: 20050904, end: 20050906
  2. PROCAIN [Suspect]
     Route: 058

REACTIONS (7)
  - DRY SKIN [None]
  - ERYTHEMA [None]
  - FEELING HOT [None]
  - NEURODERMATITIS [None]
  - PARAESTHESIA [None]
  - PHOTOSENSITIVITY REACTION [None]
  - PRURITUS [None]
